FAERS Safety Report 7333359-6 (Version None)
Quarter: 2011Q1

REPORT INFORMATION
  Report Type: 
  Country: None (occurrence: None)
  Receive Date: 20110304
  Receipt Date: 20110218
  Transmission Date: 20110831
  Serious: Yes (Death)
  Sender: FDA-Public Use
  Company Number: US-CELGENEUS-163-21880-11022296

PATIENT
  Sex: Male

DRUGS (18)
  1. SERTRALINE HYDROCHLORIDE [Concomitant]
     Route: 065
  2. ACCOLATE [Concomitant]
     Route: 065
  3. GABAPENTIN [Concomitant]
     Route: 065
  4. REVLIMID [Suspect]
     Dosage: 25 MILLIGRAM
     Route: 048
     Dates: start: 20090901
  5. ALLOPURINOL [Concomitant]
     Route: 065
  6. METOPROLOL [Concomitant]
     Route: 065
  7. PENICILLIN [Concomitant]
     Route: 065
  8. REVLIMID [Suspect]
     Indication: MULTIPLE MYELOMA
     Dosage: 25 MILLIGRAM
     Route: 048
     Dates: start: 20090401
  9. ASPIRIN [Concomitant]
     Route: 065
  10. PLAVIX [Concomitant]
     Route: 065
  11. SPIRIVA [Concomitant]
     Route: 065
  12. REVLIMID [Suspect]
     Dosage: 25 MILLIGRAM
     Route: 048
     Dates: start: 20101101
  13. ADVAIR DISKUS 100/50 [Concomitant]
     Route: 065
  14. FOLBIC [Concomitant]
     Route: 065
  15. WARFARIN SODIUM [Concomitant]
     Route: 065
  16. REVLIMID [Suspect]
     Dosage: 25 MILLIGRAM
     Route: 048
     Dates: start: 20100401
  17. ACYCLOVIR [Concomitant]
     Route: 065
  18. MIRAPEX [Concomitant]
     Route: 065

REACTIONS (1)
  - DEATH [None]
